FAERS Safety Report 19590354 (Version 2)
Quarter: 2022Q3

REPORT INFORMATION
  Report Type: Spontaneous
  Country: US (occurrence: US)
  Receive Date: 20210721
  Receipt Date: 20220730
  Transmission Date: 20221026
  Serious: Yes (Other)
  Sender: FDA-Public Use
  Company Number: US-SA-SAC20210714001201

PATIENT
  Age: 60 Year
  Sex: Female
  Weight: 70.295 kg

DRUGS (10)
  1. AUBAGIO [Suspect]
     Active Substance: TERIFLUNOMIDE
     Indication: Multiple sclerosis
     Dosage: 14 MG
     Route: 048
     Dates: start: 20190705
  2. AVONEX [Concomitant]
     Active Substance: INTERFERON BETA-1A
  3. COPAXONE [Concomitant]
     Active Substance: GLATIRAMER ACETATE
  4. TYSABRI [Concomitant]
     Active Substance: NATALIZUMAB
  5. RITUXAN [Concomitant]
     Active Substance: RITUXIMAB
  6. AMITRIPTYLINE [Concomitant]
     Active Substance: AMITRIPTYLINE
     Route: 048
  7. SERTRALINE HYDROCHLORIDE [Concomitant]
     Active Substance: SERTRALINE HYDROCHLORIDE
     Dosage: 100MG, QD
     Route: 048
  8. TRAMADOL HCL [Concomitant]
     Active Substance: TRAMADOL HYDROCHLORIDE
     Route: 048
  9. TIZANIDINE HYDROCHLORIDE [Concomitant]
     Active Substance: TIZANIDINE HYDROCHLORIDE
     Dosage: 4MG, TID
     Route: 048
  10. BACLOFEN [Concomitant]
     Active Substance: BACLOFEN
     Route: 048

REACTIONS (7)
  - Multiple sclerosis relapse [Unknown]
  - Multiple sclerosis [Unknown]
  - Skin disorder [Unknown]
  - Scab [Unknown]
  - Vitamin D abnormal [Unknown]
  - Abdominal pain upper [Unknown]
  - Rash [Unknown]

NARRATIVE: CASE EVENT DATE: 20210601
